FAERS Safety Report 9204812 (Version 1)
Quarter: 2013Q2

REPORT INFORMATION
  Report Type: Spontaneous
  Country: IN (occurrence: IN)
  Receive Date: 20130402
  Receipt Date: 20130402
  Transmission Date: 20140414
  Serious: Yes (Other)
  Sender: FDA-Public Use
  Company Number: IN-GLAXOSMITHKLINE-B0879834A

PATIENT
  Sex: 0

DRUGS (1)
  1. ACITRETIN [Suspect]
     Indication: PUSTULAR PSORIASIS
     Route: 065

REACTIONS (1)
  - Benign intracranial hypertension [Unknown]
